FAERS Safety Report 13615818 (Version 2)
Quarter: 2017Q2

REPORT INFORMATION
  Report Type: Spontaneous
  Country: JP (occurrence: JP)
  Receive Date: 20170606
  Receipt Date: 20170616
  Transmission Date: 20170830
  Serious: Yes (Other)
  Sender: FDA-Public Use
  Company Number: JP-MYLANLABS-2017M1033255

PATIENT

DRUGS (11)
  1. CLARITH [Suspect]
     Active Substance: CLARITHROMYCIN
     Indication: PYREXIA
     Route: 048
  2. PARACETAMOL [Suspect]
     Active Substance: ACETAMINOPHEN
     Indication: OROPHARYNGEAL PAIN
     Route: 065
  3. COCARL [Concomitant]
     Active Substance: ACETAMINOPHEN
     Indication: PYREXIA
     Route: 048
  4. BISOLVON [Concomitant]
     Active Substance: BROMHEXINE HYDROCHLORIDE
     Indication: PYREXIA
     Route: 048
  5. PL [Concomitant]
     Active Substance: ACETAMINOPHEN\CAFFEINE\PROMETHAZINE\SALICYLAMIDE
     Indication: UPPER RESPIRATORY TRACT INFLAMMATION
     Route: 048
  6. MUCODYNE [Concomitant]
     Active Substance: CARBOCYSTEINE
     Indication: PYREXIA
     Route: 048
  7. CLARITHROMYCIN. [Suspect]
     Active Substance: CLARITHROMYCIN
     Indication: PYREXIA
     Route: 048
  8. TRANSAMIN [Concomitant]
     Active Substance: TRANEXAMIC ACID
     Indication: PYREXIA
     Route: 065
  9. CLARITHROMYCIN. [Suspect]
     Active Substance: CLARITHROMYCIN
     Indication: OROPHARYNGEAL PAIN
     Route: 048
  10. BIOFERMIN R [Concomitant]
     Active Substance: BACILLUS SUBTILIS\LACTOBACILLUS ACIDOPHILUS\STREPTOCOCCUS FAECAIS
     Indication: PYREXIA
     Route: 048
  11. NEOJODIN [Concomitant]
     Indication: PYREXIA
     Route: 049

REACTIONS (4)
  - Stomatitis [Unknown]
  - Pyrexia [Unknown]
  - Stevens-Johnson syndrome [Unknown]
  - Cheilitis [Unknown]

NARRATIVE: CASE EVENT DATE: 20150322
